FAERS Safety Report 8266684-5 (Version None)
Quarter: 2012Q2

REPORT INFORMATION
  Report Type: 
  Country: None (occurrence: None)
  Receive Date: 20120408
  Receipt Date: 20120326
  Transmission Date: 20120825
  Serious: Yes (Other)
  Sender: FDA-Public Use
  Company Number: AR-BRISTOL-MYERS SQUIBB COMPANY-16476129

PATIENT
  Age: 38 Year
  Sex: Female

DRUGS (4)
  1. STAVUDINE [Suspect]
     Indication: HIV INFECTION
     Dates: start: 20010101, end: 20030101
  2. DIDANOSINE [Suspect]
     Indication: HIV INFECTION
     Dates: start: 20030101
  3. LAMIVUDINE [Suspect]
     Indication: HIV INFECTION
     Dates: start: 20010101
  4. NEVIRAPINE [Suspect]
     Indication: HIV INFECTION
     Dates: start: 20010101

REACTIONS (3)
  - NODULAR REGENERATIVE HYPERPLASIA [None]
  - PORTAL HYPERTENSION [None]
  - LIPODYSTROPHY ACQUIRED [None]
